FAERS Safety Report 24371179 (Version 2)
Quarter: 2024Q4

REPORT INFORMATION
  Report Type: Report from Study
  Country: US (occurrence: US)
  Receive Date: 20240927
  Receipt Date: 20241030
  Transmission Date: 20250115
  Serious: Yes (Hospitalization)
  Sender: BOEHRINGER INGELHEIM
  Company Number: US-BoehringerIngelheim-2024-BI-039683

PATIENT
  Age: 63 Year
  Sex: Female
  Weight: 60.7 kg

DRUGS (9)
  1. OFEV [Suspect]
     Active Substance: NINTEDANIB
     Indication: Interstitial lung disease
     Dosage: WITH BREAKFAST AND EVENING MEAL
     Route: 048
     Dates: start: 20231128
  2. COSENTYX [Suspect]
     Active Substance: SECUKINUMAB
     Indication: Psoriasis
     Dosage: 300MG EVERY 4 WEEKS
     Route: 058
     Dates: start: 202406
  3. amLODlPine (NORVASC) 10 tablet [Concomitant]
     Indication: Product used for unknown indication
     Route: 048
     Dates: start: 20240219
  4. atorvastatin (LIPITOR) 40 MG tablet [Concomitant]
     Indication: Product used for unknown indication
     Dosage: AT NIGHT
     Route: 048
     Dates: start: 20240914, end: 20240919
  5. desvenlafaxine succinate (PRISTIQ) 100 MG 24 hr tablet [Concomitant]
     Indication: Product used for unknown indication
     Route: 048
     Dates: start: 20231023, end: 20240418
  6. hydrochlorothiazide (HYDRODIURIL) 12.5 MG tablet [Concomitant]
     Indication: Product used for unknown indication
     Route: 048
     Dates: start: 20231127, end: 20240925
  7. losartan (COZAAR) 100 -MG tablet [Concomitant]
     Indication: Product used for unknown indication
     Route: 048
     Dates: start: 20231127
  8. albuterol (VENTOLIN HFA) 90 mcg/actuation inhaler [Concomitant]
     Indication: Wheezing
     Dosage: INHALE TWO PUFFS INTO THE LUNGS EVERY 6 (SIX) HOURS AS NEEDED
     Route: 055
     Dates: start: 20240112, end: 20240925
  9. methylPREDNlS010ne (MEDROL, PAK,) 4 mg tablet [Concomitant]
     Indication: Product used for unknown indication
     Dates: start: 20240123, end: 20240925

REACTIONS (3)
  - Haemorrhagic stroke [Unknown]
  - Nausea [Not Recovered/Not Resolved]
  - Diarrhoea [Not Recovered/Not Resolved]

NARRATIVE: CASE EVENT DATE: 20240910
